FAERS Safety Report 5455035-7 (Version None)
Quarter: 2007Q3

REPORT INFORMATION
  Report Type: 
  Country: None (occurrence: None)
  Receive Date: 20070918
  Receipt Date: 20070911
  Transmission Date: 20080115
  Serious: Yes (Other)
  Sender: FDA-Public Use
  Company Number: PHRM2007FR02187

PATIENT
  Sex: Male

DRUGS (2)
  1. EXFORGE [Suspect]
     Dosage: 1 DF, QD
     Route: 048
  2. FLECAINIDE ACETATE [Suspect]
     Indication: ARRHYTHMIA

REACTIONS (4)
  - ATRIOVENTRICULAR BLOCK [None]
  - EYELID OEDEMA [None]
  - FACE OEDEMA [None]
  - WEIGHT INCREASED [None]
